FAERS Safety Report 4905980-3 (Version None)
Quarter: 2006Q1

REPORT INFORMATION
  Report Type: 
  Country: None (occurrence: None)
  Receive Date: 20060206
  Receipt Date: 20060124
  Transmission Date: 20060701
  Serious: Yes (Hospitalization, Other)
  Sender: FDA-Public Use
  Company Number: 2005169199

PATIENT
  Age: 73 Year
  Sex: Male
  Weight: 108.8633 kg

DRUGS (4)
  1. LIPITOR [Suspect]
     Indication: BLOOD CHOLESTEROL
     Dosage: 10 MG (10 MG, 1 IN 1 D)/ABOUT 5 YEARS AGO - ABOUT 3 YEARS AGO
  2. PRAVACHOL [Suspect]
     Indication: BLOOD CHOLESTEROL
  3. DAPSONE [Concomitant]
  4. VITAMINS (VITAMINS) [Concomitant]

REACTIONS (6)
  - HIP ARTHROPLASTY [None]
  - MUSCLE SPASMS [None]
  - MUSCULAR WEAKNESS [None]
  - MYALGIA [None]
  - MYOCARDIAL INFARCTION [None]
  - PAIN IN EXTREMITY [None]
